FAERS Safety Report 22589275 (Version 2)
Quarter: 2024Q3

REPORT INFORMATION
  Report Type: Spontaneous
  Country: GB (occurrence: GB)
  Receive Date: 20230612
  Receipt Date: 20240703
  Transmission Date: 20241016
  Serious: Yes (Other)
  Sender: RANBAXY
  Company Number: GB-SUN PHARMACEUTICAL INDUSTRIES LTD-2023RR-393791

PATIENT
  Age: 52 Year
  Sex: Female
  Weight: 128 kg

DRUGS (9)
  1. MORPHINE [Suspect]
     Active Substance: MORPHINE
     Indication: Product used for unknown indication
     Dosage: 8.4MG/ML, INJECTION
     Route: 065
     Dates: start: 20230515
  2. CALCIUM CARBONATE\SODIUM ALGINATE\SODIUM BICARBONATE [Concomitant]
     Active Substance: CALCIUM CARBONATE\SODIUM ALGINATE\SODIUM BICARBONATE
     Indication: Product used for unknown indication
     Dosage: TAKE 5MLS AFTER MEALS AND 10MLS AT NIGHT
     Route: 065
     Dates: start: 20211102
  3. AMLODIPINE [Concomitant]
     Active Substance: AMLODIPINE BESYLATE
     Indication: Product used for unknown indication
     Dosage: TAKE ONE DAILY
     Route: 065
     Dates: start: 20201215
  4. ATORVASTATIN [Concomitant]
     Active Substance: ATORVASTATIN
     Indication: Product used for unknown indication
     Dosage: TAKE ONE DAILY
     Route: 065
     Dates: start: 20201215
  5. CITALOPRAM [Concomitant]
     Active Substance: CITALOPRAM\CITALOPRAM HYDROBROMIDE
     Indication: Product used for unknown indication
     Dosage: TAKE ONE TABLET DAILY
     Route: 065
     Dates: start: 20201215
  6. LOSARTAN [Concomitant]
     Active Substance: LOSARTAN
     Indication: Product used for unknown indication
     Dosage: TAKE ONE DAILY
     Route: 065
     Dates: start: 20201215
  7. OMEPRAZOLE [Concomitant]
     Active Substance: OMEPRAZOLE
     Indication: Product used for unknown indication
     Dosage: TAKE ONE DAILY
     Route: 065
     Dates: start: 20210824
  8. ACETAMINOPHEN [Concomitant]
     Active Substance: ACETAMINOPHEN
     Indication: Product used for unknown indication
     Dosage: TAKE 1-2 TABLETS EVERY 4-6 HOURS WHEN REQUIRED. NOT MORE THAN 8 TABLETS IN A DAY
     Route: 065
     Dates: start: 20201215
  9. PROCHLORPERAZINE [Concomitant]
     Active Substance: PROCHLORPERAZINE
     Indication: Product used for unknown indication
     Dosage: 1-2 TO BE TAKEN THREE TIMES DAILY WHEN REQUIRED
     Route: 065
     Dates: start: 20230508, end: 20230515

REACTIONS (1)
  - Type I hypersensitivity [Recovered/Resolved]

NARRATIVE: CASE EVENT DATE: 20230515
